FAERS Safety Report 18477921 (Version 1)
Quarter: 2020Q4

REPORT INFORMATION
  Report Type: Spontaneous
  Country: CN (occurrence: CN)
  Receive Date: 20201108
  Receipt Date: 20201108
  Transmission Date: 20210114
  Serious: Yes (Other)
  Sender: FDA-Public Use
  Company Number: CN-BAXTER-2020BAX022479

PATIENT
  Age: 2 Year
  Sex: Male

DRUGS (6)
  1. 5% GLUCOSE  INJECTION [Suspect]
     Active Substance: DEXTROSE
     Indication: MEDICATION DILUTION
     Dosage: 5% GS + CYCLOPHOSPHAMIDE
     Route: 041
     Dates: start: 20201018, end: 20201020
  2. DOXORUBICIN HYDROCHLORIDE. [Suspect]
     Active Substance: DOXORUBICIN HYDROCHLORIDE
     Indication: NEOPLASM MALIGNANT
     Dosage: DOXORUBICIN HYDROCHLORIDE + 5% GS
     Route: 041
     Dates: start: 20201018, end: 20201020
  3. 0.9% SODIUM CHLORIDE INJECTION [Suspect]
     Active Substance: SODIUM CHLORIDE
     Indication: MEDICATION DILUTION
     Dosage: NS + VINCRISTINE SULFATE
     Route: 041
     Dates: start: 20201018, end: 20201020
  4. VINCRISTINE SULFATE. [Suspect]
     Active Substance: VINCRISTINE SULFATE
     Indication: NEOPLASM MALIGNANT
     Dosage: VINCRISTINE SULFATE + NORMAL SALINE (NS)
     Route: 041
     Dates: start: 20201018, end: 20201020
  5. 5% GLUCOSE  INJECTION [Suspect]
     Active Substance: DEXTROSE
     Dosage: 5% GS + DOXORUBICIN HYDROCHLORIDE
     Route: 041
     Dates: start: 20201018, end: 20201020
  6. ENDOXAN [Suspect]
     Active Substance: CYCLOPHOSPHAMIDE
     Indication: NEOPLASM MALIGNANT
     Dosage: CYCLOPHOSPHAMIDE + 5% GLUCOSE (GS)
     Route: 041
     Dates: start: 20201018, end: 20201020

REACTIONS (1)
  - Myelosuppression [Unknown]

NARRATIVE: CASE EVENT DATE: 20201020
